FAERS Safety Report 6346135-8 (Version None)
Quarter: 2009Q3

REPORT INFORMATION
  Report Type: 
  Country: None (occurrence: None)
  Receive Date: 20090909
  Receipt Date: 20090903
  Transmission Date: 20100115
  Serious: Yes (Hospitalization, Disabling, Other)
  Sender: FDA-Public Use
  Company Number: US-MERCK-0811USA03168

PATIENT
  Age: 51 Year
  Sex: Female

DRUGS (11)
  1. FOSAMAX [Suspect]
     Indication: OSTEOPOROSIS PROPHYLAXIS
     Route: 048
     Dates: start: 20020101, end: 20030801
  2. FOSAMAX [Suspect]
     Route: 048
     Dates: start: 20030801
  3. FOSAMAX [Suspect]
     Route: 048
     Dates: start: 20031001, end: 20060101
  4. FOSAMAX [Suspect]
     Route: 048
     Dates: start: 20020723
  5. FOSAMAX [Suspect]
     Indication: OSTEOPENIA
     Route: 048
     Dates: start: 20020101, end: 20030801
  6. FOSAMAX [Suspect]
     Route: 048
     Dates: start: 20030801
  7. FOSAMAX [Suspect]
     Route: 048
     Dates: start: 20031001, end: 20060101
  8. FOSAMAX [Suspect]
     Route: 048
     Dates: start: 20020723
  9. CLARINEX [Concomitant]
     Indication: SEASONAL ALLERGY
     Route: 065
     Dates: start: 20020101, end: 20060101
  10. ZYRTEC [Concomitant]
     Indication: SEASONAL ALLERGY
     Route: 065
     Dates: start: 20020101, end: 20060101
  11. TRIAMCINOLONE [Concomitant]
     Indication: INADEQUATE LUBRICATION
     Route: 065
     Dates: start: 20020101, end: 20050101

REACTIONS (28)
  - ABSCESS [None]
  - ADVERSE DRUG REACTION [None]
  - ADVERSE EVENT [None]
  - ANKLE FRACTURE [None]
  - ANXIETY [None]
  - BODY DYSMORPHIC DISORDER [None]
  - COUGH [None]
  - DEPRESSION [None]
  - DIVERTICULITIS [None]
  - FACIAL PALSY [None]
  - FLUID RETENTION [None]
  - HORMONE THERAPY [None]
  - HOT FLUSH [None]
  - HYPERTENSION [None]
  - INCREASED TENDENCY TO BRUISE [None]
  - MALOCCLUSION [None]
  - OESOPHAGEAL SPASM [None]
  - OVARIAN CYST RUPTURED [None]
  - OVARIAN DISORDER [None]
  - OVERDOSE [None]
  - PARAESTHESIA [None]
  - PERITONITIS [None]
  - RESORPTION BONE INCREASED [None]
  - RESTLESS LEGS SYNDROME [None]
  - RHINITIS [None]
  - SINUSITIS [None]
  - TEMPOROMANDIBULAR JOINT SYNDROME [None]
  - URTICARIA [None]
